FAERS Safety Report 17358250 (Version 1)
Quarter: 2020Q1

REPORT INFORMATION
  Report Type: Report from Study
  Country: None (occurrence: US)
  Receive Date: 20200131
  Receipt Date: 20200131
  Transmission Date: 20200409
  Serious: Yes (Other)
  Sender: FDA-Public Use
  Company Number: US-ABBVIE-20K-163-3250780-00

PATIENT
  Age: 74 Year
  Sex: Male

DRUGS (2)
  1. DUOPA [Suspect]
     Active Substance: CARBIDOPA\LEVODOPA
     Indication: PRODUCT USED FOR UNKNOWN INDICATION
     Route: 050
     Dates: start: 20171010, end: 202001
  2. DUOPA [Suspect]
     Active Substance: CARBIDOPA\LEVODOPA
     Route: 050
     Dates: start: 20200123

REACTIONS (4)
  - Visual impairment [Unknown]
  - Device occlusion [Unknown]
  - Dizziness [Unknown]
  - Mydriasis [Recovered/Resolved]

NARRATIVE: CASE EVENT DATE: 202001
